FAERS Safety Report 24259653 (Version 3)
Quarter: 2025Q3

REPORT INFORMATION
  Report Type: Spontaneous
  Country: RU (occurrence: RU)
  Receive Date: 20240828
  Receipt Date: 20250810
  Transmission Date: 20251020
  Serious: Yes (Death)
  Sender: ALEXION PHARMACEUTICALS
  Company Number: RU-ALXN-202408RUS001680RU

PATIENT
  Age: 22 Year
  Sex: Female
  Weight: 60 kg

DRUGS (1)
  1. KANUMA [Suspect]
     Active Substance: SEBELIPASE ALFA
     Indication: Lysosomal acid lipase deficiency
     Dosage: 3 BOTTLES, Q2W
     Dates: start: 2016

REACTIONS (2)
  - Road traffic accident [Fatal]
  - Injury [Fatal]

NARRATIVE: CASE EVENT DATE: 20240801
